FAERS Safety Report 6293149-2 (Version None)
Quarter: 2009Q3

REPORT INFORMATION
  Report Type: 
  Country: None (occurrence: None)
  Receive Date: 20090731
  Receipt Date: 20090721
  Transmission Date: 20100115
  Serious: Yes (Hospitalization)
  Sender: FDA-Public Use
  Company Number: US-SANOFI-SYNTHELABO-A03200903202

PATIENT
  Age: 29 Year
  Sex: Male

DRUGS (2)
  1. ALCOHOL [Suspect]
     Indication: DRUG USE FOR UNKNOWN INDICATION
     Dosage: DRANK VODKA AND BEER
     Route: 048
     Dates: start: 20090719
  2. AMBIEN [Suspect]
     Indication: SLEEP DISORDER
     Dosage: UNK
     Route: 048
     Dates: start: 20090719

REACTIONS (3)
  - DEHYDRATION [None]
  - MENTAL DISORDER [None]
  - OVERDOSE [None]
